FAERS Safety Report 21314967 (Version 6)
Quarter: 2025Q3

REPORT INFORMATION
  Report Type: Report from Study
  Country: JP (occurrence: JP)
  Receive Date: 20220909
  Receipt Date: 20250802
  Transmission Date: 20251020
  Serious: Yes (Death, Other)
  Sender: ALEXION PHARMACEUTICALS
  Company Number: 2022A311374

PATIENT
  Age: 86 Year
  Sex: Male
  Weight: 65 kg

DRUGS (11)
  1. ANDEXXA [Suspect]
     Active Substance: ANDEXANET ALFA
     Indication: Subdural haematoma
     Dates: start: 20220816, end: 20220816
  2. PRAVASTATIN SODIUM [Concomitant]
     Active Substance: PRAVASTATIN SODIUM
     Indication: Hyperlipidaemia
     Dates: start: 20220816, end: 20220817
  3. HERBALS [Concomitant]
     Active Substance: HERBALS
     Indication: Subarachnoid haemorrhage
     Dates: start: 20220818, end: 20220824
  4. REBAMIPIDE [Concomitant]
     Active Substance: REBAMIPIDE
     Indication: Chronic gastritis
     Dates: start: 20220818, end: 20220819
  5. SPIRONOLACTONE [Concomitant]
     Active Substance: SPIRONOLACTONE
     Indication: Cardiac failure congestive
     Dates: start: 20220820, end: 20220826
  6. CARVEDILOL [Concomitant]
     Active Substance: CARVEDILOL
     Indication: Hypertension
     Dates: start: 20220825, end: 20220827
  7. ENALAPRIL MALEATE [Concomitant]
     Active Substance: ENALAPRIL MALEATE
     Indication: Hypertension
     Dates: start: 20220820, end: 20220827
  8. FUROSEMIDE [Concomitant]
     Active Substance: FUROSEMIDE
     Indication: Cardiac failure congestive
     Dates: start: 20220818, end: 20220819
  9. FUROSEMIDE [Concomitant]
     Active Substance: FUROSEMIDE
     Dates: start: 20220818, end: 20220824
  10. CARBAZOCHROME [Concomitant]
     Active Substance: CARBAZOCHROME
     Indication: Subdural haematoma
     Route: 065
     Dates: start: 20220816, end: 20220826
  11. TRANEXAMIC ACID [Concomitant]
     Active Substance: TRANEXAMIC ACID
     Indication: Subarachnoid haemorrhage
     Route: 065
     Dates: start: 20220816, end: 20220826

REACTIONS (3)
  - Pneumonia [Fatal]
  - Pulmonary alveolar haemorrhage [Fatal]
  - Cardiac failure congestive [Fatal]

NARRATIVE: CASE EVENT DATE: 20220816
